FAERS Safety Report 9126578 (Version 1)
Quarter: 2013Q1

REPORT INFORMATION
  Report Type: Report from Study
  Country: FR (occurrence: FR)
  Receive Date: 20130117
  Receipt Date: 20130117
  Transmission Date: 20140127
  Serious: Yes (Other)
  Sender: FDA-Public Use
  Company Number: FR-ROCHE-1178520

PATIENT
  Age: 55 Year
  Sex: Male

DRUGS (1)
  1. BEVACIZUMAB [Suspect]
     Indication: COLON CANCER
     Route: 065
     Dates: start: 20080718

REACTIONS (2)
  - Tumour perforation [Unknown]
  - Peritonitis [Unknown]
